FAERS Safety Report 9041481 (Version 1)
Quarter: 2013Q1

REPORT INFORMATION
  Report Type: Report from Study
  Country: US (occurrence: US)
  Receive Date: 20130129
  Receipt Date: 20130129
  Transmission Date: 20140127
  Serious: No
  Sender: FDA-Public Use
  Company Number: US-ABBOTT-12P-163-0901458-00

PATIENT
  Age: 56 Year
  Sex: Male

DRUGS (1)
  1. HUMIRA 40 MG/0.8 ML PEN [Suspect]
     Indication: CROHN^S DISEASE
     Dates: start: 201107

REACTIONS (10)
  - Injection site pain [Recovering/Resolving]
  - Gastrointestinal inflammation [Recovering/Resolving]
  - Nausea [Recovering/Resolving]
  - Unevaluable event [Recovering/Resolving]
  - Rash pruritic [Recovering/Resolving]
  - Rash [Recovering/Resolving]
  - Infection [Recovering/Resolving]
  - Device malfunction [Unknown]
  - Incorrect dose administered [Unknown]
  - Drug ineffective [Unknown]
